FAERS Safety Report 24156988 (Version 1)
Quarter: 2024Q3

REPORT INFORMATION
  Report Type: Spontaneous
  Country: FR (occurrence: None)
  Receive Date: 20240731
  Receipt Date: 20240731
  Transmission Date: 20241017
  Serious: Yes (Hospitalization)
  Sender: ASTRAZENECA
  Company Number: 2024A167112

PATIENT
  Age: 76 Year
  Sex: Male
  Weight: 74.6 kg

DRUGS (2)
  1. XIGDUO XR [Suspect]
     Active Substance: DAPAGLIFLOZIN PROPANEDIOL\METFORMIN HYDROCHLORIDE
     Indication: Type 2 diabetes mellitus
     Route: 048
     Dates: start: 20240402, end: 20240609
  2. DAPAGLIFLOZIN [Suspect]
     Active Substance: DAPAGLIFLOZIN
     Indication: Type 2 diabetes mellitus
     Route: 048
     Dates: start: 20240610, end: 20240704

REACTIONS (2)
  - Toe amputation [Not Recovered/Not Resolved]
  - Foot amputation [Not Recovered/Not Resolved]

NARRATIVE: CASE EVENT DATE: 20240516
